FAERS Safety Report 9388075 (Version 1)
Quarter: 2013Q3

REPORT INFORMATION
  Report Type: Spontaneous
  Country: US (occurrence: US)
  Receive Date: 20130708
  Receipt Date: 20130708
  Transmission Date: 20140515
  Serious: Yes (Hospitalization)
  Sender: FDA-Public Use
  Company Number: US-GLAXOSMITHKLINE-A0790925A

PATIENT
  Age: 45 Year
  Sex: Male

DRUGS (1)
  1. AVANDIA [Suspect]
     Indication: TYPE 2 DIABETES MELLITUS
     Route: 048
     Dates: start: 200211, end: 200305

REACTIONS (5)
  - Myocardial infarction [Unknown]
  - Oedema [Unknown]
  - Activities of daily living impaired [Unknown]
  - Ischaemic cardiomyopathy [Unknown]
  - Cardiac pacemaker insertion [Unknown]
